FAERS Safety Report 9832736 (Version 3)
Quarter: 2014Q1

REPORT INFORMATION
  Report Type: Spontaneous
  Country: US (occurrence: US)
  Receive Date: 20140121
  Receipt Date: 20140228
  Transmission Date: 20141002
  Serious: Yes (Other)
  Sender: FDA-Public Use
  Company Number: US-CELGENEUS-163-21880-13064509

PATIENT
  Age: 74 Year
  Sex: Male
  Weight: 74.9 kg

DRUGS (11)
  1. REVLIMID [Suspect]
     Indication: PLASMA CELL MYELOMA
     Dosage: 15 MILLIGRAM
     Route: 048
     Dates: start: 20110609, end: 20111006
  2. REVLIMID [Suspect]
     Dosage: 10 MILLIGRAM
     Route: 048
     Dates: start: 20120608, end: 20130813
  3. LISINOPRIL [Concomitant]
     Indication: HYPERTENSION
     Dosage: 40 MILLIGRAM
     Route: 048
     Dates: start: 2011
  4. METOPROLOL [Concomitant]
     Indication: HYPERTENSION
     Dosage: 200 MILLIGRAM
     Route: 048
     Dates: start: 2011
  5. ASPIRINE [Concomitant]
     Indication: CARDIAC DISORDER
     Dosage: 81 MILLIGRAM
     Route: 048
     Dates: start: 2011, end: 201307
  6. ALLOPURINOL [Concomitant]
     Indication: GOUT
     Dosage: 300 MILLIGRAM
     Route: 048
     Dates: start: 2011
  7. COLCHICINE [Concomitant]
     Indication: GOUT
     Dosage: .6 MILLIGRAM
     Route: 048
     Dates: start: 2011
  8. DANAZOL [Concomitant]
     Indication: THROMBOCYTOPENIA
     Dosage: 600 MILLIGRAM
     Route: 048
     Dates: start: 201309
  9. AMLODIPINE [Concomitant]
     Indication: HYPERTENSION
     Dosage: 10 MILLIGRAM
     Route: 048
     Dates: start: 201202
  10. DECADRON [Concomitant]
     Indication: PRODUCT USED FOR UNKNOWN INDICATION
     Route: 065
     Dates: start: 20110606, end: 20111006
  11. VELCADE [Concomitant]
     Indication: PRODUCT USED FOR UNKNOWN INDICATION
     Route: 065
     Dates: start: 20110606, end: 20111006

REACTIONS (2)
  - Myelodysplastic syndrome [Not Recovered/Not Resolved]
  - Plasma cell myeloma [Not Recovered/Not Resolved]
